FAERS Safety Report 21763242 (Version 1)
Quarter: 2022Q4

REPORT INFORMATION
  Report Type: Spontaneous
  Country: NL (occurrence: NL)
  Receive Date: 20221221
  Receipt Date: 20221221
  Transmission Date: 20230113
  Serious: Yes (Life-Threatening)
  Sender: FDA-Public Use
  Company Number: None

PATIENT
  Sex: Male
  Weight: 98 kg

DRUGS (3)
  1. INDAPAMIDE\PERINDOPRIL [Suspect]
     Active Substance: INDAPAMIDE\PERINDOPRIL
     Indication: Hypertension
     Dosage: 1 DOSAGE FORMS DAILY; 1X DAILY 1 PIECE; PERINDOPRIL/INDAPAMIDE TABLET 8/2.5MG / BRAND NAME NOT SPECI
     Dates: start: 20150101, end: 20221202
  2. COLCHICINE [Suspect]
     Active Substance: COLCHICINE
     Indication: Gout
     Dosage: 1 PIECE 2-3 TIMES A DAY; COLCHICINE TABLET 0.5MG / BRAND NAME NOT SPECIFIED; UNIT DOSE: 0.5MG
     Dates: start: 20221130, end: 20221202
  3. ALBUTEROL SULFATE\IPRATROPIUM BROMIDE [Concomitant]
     Active Substance: ALBUTEROL SULFATE\IPRATROPIUM BROMIDE
     Indication: Product used for unknown indication
     Dosage: NEBULIZER, 1/0.2 MG/ML ; SALBUTAMOL/IPRATROPIUM NEVELOPL ST 1/0.2MG/ML / IPRAMOL STERI-NEB NEVELOPL

REACTIONS (1)
  - Angioedema [Recovering/Resolving]
